FAERS Safety Report 12439921 (Version 1)
Quarter: 2016Q2

REPORT INFORMATION
  Report Type: Spontaneous
  Country: JP (occurrence: JP)
  Receive Date: 20160606
  Receipt Date: 20160606
  Transmission Date: 20160815
  Serious: Yes (Death, Other)
  Sender: FDA-Public Use
  Company Number: PHJP1900JP002604

PATIENT
  Age: 29 Year
  Sex: Male

DRUGS (11)
  1. SANDIMMUN [Suspect]
     Active Substance: CYCLOSPORINE
     Dosage: 50 MG, QD
     Route: 048
     Dates: start: 19910418, end: 19910514
  2. SANDIMMUN [Suspect]
     Active Substance: CYCLOSPORINE
     Indication: RENAL TRANSPLANT
     Dosage: 470 MG, QD
     Route: 048
     Dates: start: 19870130, end: 19870201
  3. SANDIMMUN [Suspect]
     Active Substance: CYCLOSPORINE
     Dosage: 240 MG, QD
     Dates: start: 19870202, end: 19870203
  4. SANDIMMUN [Suspect]
     Active Substance: CYCLOSPORINE
     Dosage: 730 MG, QD
     Route: 048
     Dates: start: 19870204, end: 19870209
  5. SANDIMMUN [Suspect]
     Active Substance: CYCLOSPORINE
     Dosage: 150 MG, QD
     Route: 048
     Dates: start: 19910114, end: 19910417
  6. SANDIMMUN [Suspect]
     Active Substance: CYCLOSPORINE
     Dosage: 490 MG, QD
     Route: 048
     Dates: start: 19870214, end: 19870217
  7. SANDIMMUN [Suspect]
     Active Substance: CYCLOSPORINE
     Dosage: 430 MG, QD
     Route: 048
     Dates: start: 19870218, end: 19870224
  8. PREDONINE [Suspect]
     Active Substance: PREDNISOLONE\PREDNISOLONE ACETATE\PREDNISOLONE SODIUM SUCCINATE
     Indication: RENAL TRANSPLANT
     Route: 065
     Dates: start: 19870202, end: 19920517
  9. SANDIMMUN [Suspect]
     Active Substance: CYCLOSPORINE
     Dosage: 290 MG, QD
     Route: 048
     Dates: start: 19870308, end: 19910113
  10. SANDIMMUN [Suspect]
     Active Substance: CYCLOSPORINE
     Dosage: 610 MG, QD
     Route: 048
     Dates: start: 19870210, end: 19870213
  11. SANDIMMUN [Suspect]
     Active Substance: CYCLOSPORINE
     Dosage: 350 MG, QD
     Route: 048
     Dates: start: 19870225, end: 19870307

REACTIONS (1)
  - Pneumonia [Fatal]
